FAERS Safety Report 8620893-1 (Version None)
Quarter: 2012Q3

REPORT INFORMATION
  Report Type: 
  Country: None (occurrence: None)
  Receive Date: 20120824
  Receipt Date: 20120817
  Transmission Date: 20120928
  Serious: Yes (Other)
  Sender: FDA-Public Use
  Company Number: CHPA2012US018527

PATIENT
  Age: 43 Year
  Sex: Female

DRUGS (2)
  1. GAS-X [Concomitant]
     Indication: FLATULENCE
     Dosage: 1 OR 2 TABLETS, MAYBE ONCE A WEEK
  2. EXCEDRIN EXTRA STRENGTH CAPLETS [Suspect]
     Indication: HEADACHE
     Dosage: 1 OR 2 DF, PRN
     Route: 048

REACTIONS (2)
  - ASTHMA [None]
  - UNDERDOSE [None]
